FAERS Safety Report 10619418 (Version 1)
Quarter: 2014Q4

REPORT INFORMATION
  Report Type: Spontaneous
  Country: DE (occurrence: DE)
  Receive Date: 20141202
  Receipt Date: 20141202
  Transmission Date: 20150529
  Serious: Yes (Hospitalization, Other)
  Sender: FDA-Public Use
  Company Number: GXKR2014DE004399

PATIENT
  Sex: Female

DRUGS (3)
  1. AMLODIPINE [Suspect]
     Active Substance: AMLODIPINE BESYLATE
     Dosage: 10 MG, UNK
  2. IBU-LYSINHEXAL [Suspect]
     Active Substance: IBUPROFEN LYSINE
  3. INSULIN [Suspect]
     Active Substance: INSULIN NOS
     Route: 065

REACTIONS (5)
  - Overdose [Unknown]
  - Asthenia [Unknown]
  - Depression [Unknown]
  - Coma [Unknown]
  - Fatigue [Unknown]
